FAERS Safety Report 15200052 (Version 2)
Quarter: 2018Q3

REPORT INFORMATION
  Report Type: Spontaneous
  Country: US (occurrence: US)
  Receive Date: 20180725
  Receipt Date: 20180731
  Transmission Date: 20181010
  Serious: Yes (Death, Other)
  Sender: FDA-Public Use
  Company Number: US-MYLANLABS-2018M1057116

PATIENT
  Age: 51 Year
  Sex: Male

DRUGS (1)
  1. EPINEPHRINE. [Suspect]
     Active Substance: EPINEPHRINE
     Indication: ARTHROPOD STING
     Dosage: UNK
     Route: 065
     Dates: start: 20180707

REACTIONS (3)
  - Drug ineffective [Fatal]
  - Anaphylactic reaction [Fatal]
  - Needle issue [Unknown]

NARRATIVE: CASE EVENT DATE: 20180707
